FAERS Safety Report 20763125 (Version 1)
Quarter: 2022Q2

REPORT INFORMATION
  Report Type: Report from Study
  Country: AR (occurrence: AR)
  Receive Date: 20220428
  Receipt Date: 20220428
  Transmission Date: 20220720
  Serious: Yes (Hospitalization)
  Sender: FDA-Public Use
  Company Number: AR-JNJFOC-20220444113

PATIENT
  Age: 83 Year
  Sex: Female

DRUGS (1)
  1. SIMPONI [Suspect]
     Active Substance: GOLIMUMAB
     Indication: Rheumatoid arthritis
     Route: 042
     Dates: start: 20171106

REACTIONS (5)
  - Gastroenteritis [Recovered/Resolved]
  - Bone marrow disorder [Recovered/Resolved]
  - Rheumatoid arthritis [Recovered/Resolved]
  - Urinary tract infection [Recovered/Resolved]
  - Weight increased [Unknown]

NARRATIVE: CASE EVENT DATE: 20211210
